FAERS Safety Report 24259270 (Version 1)
Quarter: 2024Q3

REPORT INFORMATION
  Report Type: Spontaneous
  Country: US (occurrence: US)
  Receive Date: 20240828
  Receipt Date: 20240828
  Transmission Date: 20241017
  Serious: No
  Sender: KOWA PHARM
  Company Number: US-KOWA-23US001567

PATIENT

DRUGS (1)
  1. LIVALO [Suspect]
     Active Substance: PITAVASTATIN CALCIUM
     Indication: Product used for unknown indication
     Dosage: 2 MG, QW
     Dates: start: 20231002, end: 20231002

REACTIONS (3)
  - Paralysis [Recovered/Resolved]
  - Pain [Recovered/Resolved]
  - Inappropriate schedule of product administration [Unknown]

NARRATIVE: CASE EVENT DATE: 20231002
